FAERS Safety Report 8442867-6 (Version None)
Quarter: 2012Q2

REPORT INFORMATION
  Report Type: 
  Country: None (occurrence: None)
  Receive Date: 20120615
  Receipt Date: 20120612
  Transmission Date: 20120825
  Serious: Yes (Other)
  Sender: FDA-Public Use
  Company Number: US-JNJFOC-20120518523

PATIENT
  Sex: Female

DRUGS (2)
  1. NORETHINDRONE ACETATE [Suspect]
     Indication: PRODUCT USED FOR UNKNOWN INDICATION
     Route: 048
     Dates: start: 20110101
  2. PRISTIQ [Suspect]
     Indication: ANXIETY
     Route: 065
     Dates: start: 20111201

REACTIONS (4)
  - UNINTENDED PREGNANCY [None]
  - PREMATURE DELIVERY [None]
  - HAEMORRHAGE IN PREGNANCY [None]
  - MATERNAL EXPOSURE DURING PREGNANCY [None]
